FAERS Safety Report 17398487 (Version 3)
Quarter: 2020Q3

REPORT INFORMATION
  Report Type: Spontaneous
  Country: DE (occurrence: DE)
  Receive Date: 20200210
  Receipt Date: 20200715
  Transmission Date: 20201102
  Serious: Yes (Other)
  Sender: FDA-Public Use
  Company Number: DE-MYLANLABS-2020M1014469

PATIENT
  Sex: Male
  Weight: 130 kg

DRUGS (19)
  1. RIVAROXABAN [Concomitant]
     Active Substance: RIVAROXABAN
     Indication: BLOOD COUNT ABNORMAL
     Dosage: 1?0?0?0
  2. PANTOPRAZOL                        /01263201/ [Concomitant]
     Active Substance: PANTOPRAZOLE
     Indication: GASTROINTESTINAL DISORDER
     Dosage: 1?0?0?0 AS NEEDED
  3. METAMIZOL NATRIUM [Concomitant]
     Active Substance: METAMIZOLE SODIUM
     Indication: PAIN
     Dosage: AS NEEDED
  4. METFORMIN HYDROCHLORIDE. [Concomitant]
     Active Substance: METFORMIN HYDROCHLORIDE
     Indication: BLOOD GLUCOSE ABNORMAL
     Dosage: 1?0?1?0
  5. VALSARTAN DURA 320 MG FILMTABLETTEN [Suspect]
     Active Substance: VALSARTAN
     Dosage: 80 MILLIGRAM, QD
     Dates: start: 201801, end: 20190208
  6. VALSARTAN DURA 320 MG FILMTABLETTEN [Suspect]
     Active Substance: VALSARTAN
     Dosage: 80 MILLIGRAM, QD
     Dates: start: 201902, end: 201905
  7. CANDESARTAN. [Suspect]
     Active Substance: CANDESARTAN
     Indication: PRODUCT USED FOR UNKNOWN INDICATION
     Dosage: UNK
     Dates: start: 201902, end: 201905
  8. VALSARTAN. [Suspect]
     Active Substance: VALSARTAN
     Indication: PRODUCT USED FOR UNKNOWN INDICATION
     Dosage: 80 MILLIGRAM, QD
     Dates: start: 201710, end: 201801
  9. ALLOPURINOL. [Concomitant]
     Active Substance: ALLOPURINOL
     Indication: BLOOD URIC ACID ABNORMAL
     Dosage: 0?0?0?1
  10. CANDESARTAN. [Suspect]
     Active Substance: CANDESARTAN
     Indication: PRODUCT USED FOR UNKNOWN INDICATION
     Dosage: UNK
     Dates: start: 201905, end: 201911
  11. LEVOTHYROXINUM NATRICUM [Concomitant]
     Indication: THYROID DISORDER
     Dosage: 1?0?0?0
  12. PROMETHAZINE [Concomitant]
     Active Substance: PROMETHAZINE HYDROCHLORIDE
     Indication: FEAR OF DISEASE
     Dosage: 25 MILLIGRAM
  13. VALSARTAN DURA 320 MG FILMTABLETTEN [Suspect]
     Active Substance: VALSARTAN
     Indication: PRODUCT USED FOR UNKNOWN INDICATION
     Dosage: 80 MILLIGRAM, QD
     Dates: start: 20160818, end: 201710
  14. PROMETHAZINE [Concomitant]
     Active Substance: PROMETHAZINE HYDROCHLORIDE
     Indication: DEPRESSION
  15. MILNANEURAX [Concomitant]
     Active Substance: MILNACIPRAN HYDROCHLORIDE
     Indication: DEPRESSION
  16. CANDESARTAN CILEXETIL. [Concomitant]
     Active Substance: CANDESARTAN CILEXETIL
     Indication: BLOOD PRESSURE ABNORMAL
     Dosage: 1?0?0?0
  17. ATORVASTATIN [Concomitant]
     Active Substance: ATORVASTATIN
     Indication: LIPIDS ABNORMAL
     Dosage: 0?0?0.5?0
  18. CANDESARTANCILEXETIL MYLAN 32 MG TABLETTEN [Suspect]
     Active Substance: CANDESARTAN CILEXETIL
     Indication: PRODUCT USED FOR UNKNOWN INDICATION
     Dosage: UNK
     Dates: start: 201911
  19. MILNANEURAX [Concomitant]
     Active Substance: MILNACIPRAN HYDROCHLORIDE
     Indication: FEAR OF DISEASE
     Dosage: 50 MILLIGRAM

REACTIONS (20)
  - Fear of disease [Unknown]
  - Cerebrovascular accident [Unknown]
  - Restlessness [Unknown]
  - Chest discomfort [Unknown]
  - Tremor [Unknown]
  - Insomnia [Unknown]
  - Vomiting [Unknown]
  - Disturbance in attention [Unknown]
  - Fatigue [Unknown]
  - Dizziness [Unknown]
  - Atrial fibrillation [Unknown]
  - Panic attack [Unknown]
  - Depression [Unknown]
  - Hyperhidrosis [Unknown]
  - Mental impairment [Unknown]
  - Loss of personal independence in daily activities [Unknown]
  - Nervousness [Unknown]
  - Chest pain [Unknown]
  - Nausea [Unknown]
  - Gastrointestinal disorder [Unknown]

NARRATIVE: CASE EVENT DATE: 2018
